FAERS Safety Report 10050162 (Version 1)
Quarter: 2014Q1

REPORT INFORMATION
  Report Type: Spontaneous
  Country: US (occurrence: None)
  Receive Date: 20140331
  Receipt Date: 20140331
  Transmission Date: 20141002
  Serious: Yes (Other)
  Sender: FDA-Public Use
  Company Number: None

PATIENT
  Age: 38 Year
  Sex: Female

DRUGS (1)
  1. MIRALAX MERCK [Suspect]
     Indication: CONSTIPATION
     Dosage: 17G DISSOLVED IN WATER. 1 DOSE, TAKEN BY MOUTH
     Route: 048
     Dates: start: 20140310, end: 20140310

REACTIONS (6)
  - Abdominal tenderness [None]
  - Abdominal pain [None]
  - Pyrexia [None]
  - Chills [None]
  - Nausea [None]
  - Hyperhidrosis [None]
